FAERS Safety Report 6297317-5 (Version None)
Quarter: 2009Q3

REPORT INFORMATION
  Report Type: 
  Country: None (occurrence: None)
  Receive Date: 20090805
  Receipt Date: 20090729
  Transmission Date: 20100115
  Serious: Yes (Disabling)
  Sender: FDA-Public Use
  Company Number: PT-PFIZER INC-2009194292

PATIENT
  Age: 32 Year

DRUGS (4)
  1. XANAX [Suspect]
     Dosage: UNK
  2. AMOXICILLIN TRIHYDRATE [Suspect]
     Indication: TOOTH INFECTION
     Dosage: UNK
     Dates: start: 20090101
  3. CLAVULANATE POTASSIUM [Suspect]
     Indication: TOOTH INFECTION
     Dosage: UNK
     Dates: start: 20090101
  4. VENLAFAXINE HCL [Suspect]
     Dosage: UNK

REACTIONS (2)
  - ANXIETY [None]
  - SOMNOLENCE [None]
